FAERS Safety Report 7512476-1 (Version None)
Quarter: 2011Q2

REPORT INFORMATION
  Report Type: 
  Country: None (occurrence: None)
  Receive Date: 20110531
  Receipt Date: 20110526
  Transmission Date: 20111010
  Serious: Yes (Death, Hospitalization)
  Sender: FDA-Public Use
  Company Number: DE-ROCHE-774543

PATIENT
  Sex: Male
  Weight: 87 kg

DRUGS (3)
  1. CARBOPLATIN [Concomitant]
     Indication: BREAST CANCER
     Dosage: LAST GIVEN DOSAGE ON 16 APR 2011.
     Route: 042
  2. AVASTIN [Suspect]
     Indication: BREAST CANCER
     Dosage: LAST GIVEN DOSAGE ON 15 APR 2011.
     Route: 042
  3. PACLITAXEL [Concomitant]
     Indication: BREAST CANCER
     Dosage: LAST GIVEN DOSAGE ON 16 APR 2011.
     Route: 042

REACTIONS (2)
  - PULMONARY EMBOLISM [None]
  - CARDIAC ARREST [None]
